FAERS Safety Report 9717633 (Version 1)
Quarter: 2013Q4

REPORT INFORMATION
  Report Type: Spontaneous
  Country: CL (occurrence: CL)
  Receive Date: 20131127
  Receipt Date: 20131127
  Transmission Date: 20140711
  Serious: Yes (Other)
  Sender: FDA-Public Use
  Company Number: CL-PFIZER INC-2013337191

PATIENT
  Age: 72 Year
  Sex: Male

DRUGS (4)
  1. XALACOM [Suspect]
     Indication: CATARACT
     Dosage: UNK
     Dates: start: 2011, end: 201309
  2. XALATAN [Suspect]
     Indication: CATARACT
     Dosage: UNK
     Dates: start: 2011, end: 201309
  3. ENALAPRIL [Concomitant]
  4. LOSARTAN [Concomitant]

REACTIONS (5)
  - Blindness unilateral [Not Recovered/Not Resolved]
  - Visual impairment [Not Recovered/Not Resolved]
  - Sinusitis [Not Recovered/Not Resolved]
  - Headache [Not Recovered/Not Resolved]
  - Intentional drug misuse [Unknown]
